FAERS Safety Report 16151706 (Version 6)
Quarter: 2023Q2

REPORT INFORMATION
  Report Type: Spontaneous
  Country: HU (occurrence: HU)
  Receive Date: 20190403
  Receipt Date: 20230522
  Transmission Date: 20230722
  Serious: Yes (Hospitalization, Other)
  Sender: FDA-Public Use
  Company Number: HU-EMA-DD-20210712-ZAVIOUR_N-110359

PATIENT
  Age: 52 Year
  Sex: Male

DRUGS (12)
  1. PALIPERIDONE [Suspect]
     Active Substance: PALIPERIDONE
     Indication: Schizophrenia
     Route: 048
  2. HALOPERIDOL [Suspect]
     Active Substance: HALOPERIDOL
     Indication: Product used for unknown indication
     Route: 065
  3. RIVOTRIL [Suspect]
     Active Substance: CLONAZEPAM
     Indication: Product used for unknown indication
     Route: 065
  4. QUETIAPINE [Suspect]
     Active Substance: QUETIAPINE
     Indication: Product used for unknown indication
     Route: 065
  5. MIRTAZAPINE [Suspect]
     Active Substance: MIRTAZAPINE
     Indication: Product used for unknown indication
     Route: 065
  6. BIPERIDEN [Suspect]
     Active Substance: BIPERIDEN
     Indication: Product used for unknown indication
     Route: 065
  7. PROCYCLIDINE HYDROCHLORIDE [Suspect]
     Active Substance: PROCYCLIDINE HYDROCHLORIDE
     Indication: Product used for unknown indication
     Route: 065
  8. PANTOPRAZOLE [Suspect]
     Active Substance: PANTOPRAZOLE
     Indication: Product used for unknown indication
     Route: 065
  9. CINOLAZEPAM [Suspect]
     Active Substance: CINOLAZEPAM
     Indication: Product used for unknown indication
     Route: 065
  10. PERINDOPRIL [Suspect]
     Active Substance: PERINDOPRIL
     Indication: Product used for unknown indication
     Route: 065
  11. ENOXAPARIN SODIUM [Concomitant]
     Active Substance: ENOXAPARIN SODIUM
  12. METOPROLOL [Concomitant]
     Active Substance: METOPROLOL

REACTIONS (10)
  - Hyponatraemia [Recovering/Resolving]
  - Spinal compression fracture [Recovering/Resolving]
  - Paraparesis [Recovering/Resolving]
  - Postoperative respiratory failure [Recovering/Resolving]
  - Fall [Recovering/Resolving]
  - Sinus tachycardia [Recovering/Resolving]
  - Seizure [Unknown]
  - Altered state of consciousness [Recovered/Resolved]
  - Extradural abscess [Unknown]
  - Subdural abscess [Unknown]

NARRATIVE: CASE EVENT DATE: 20130101
